FAERS Safety Report 22964313 (Version 5)
Quarter: 2023Q4

REPORT INFORMATION
  Report Type: Report from Study
  Country: US (occurrence: US)
  Receive Date: 20230921
  Receipt Date: 20231221
  Transmission Date: 20240109
  Serious: Yes (Hospitalization, Other)
  Sender: FDA-Public Use
  Company Number: US-JNJFOC-20230929394

PATIENT
  Age: 68 Year
  Sex: Male
  Weight: 89.1 kg

DRUGS (10)
  1. EPOPROSTENOL SODIUM [Suspect]
     Active Substance: EPOPROSTENOL SODIUM
     Indication: Pulmonary arterial hypertension
     Dosage: 1 TO 3 NG/KG/MIN
     Route: 042
     Dates: start: 2023
  2. EPOPROSTENOL SODIUM [Suspect]
     Active Substance: EPOPROSTENOL SODIUM
     Route: 042
  3. EPOPROSTENOL SODIUM [Suspect]
     Active Substance: EPOPROSTENOL SODIUM
     Route: 042
  4. EPOPROSTENOL SODIUM [Suspect]
     Active Substance: EPOPROSTENOL SODIUM
     Route: 042
  5. EPOPROSTENOL SODIUM [Suspect]
     Active Substance: EPOPROSTENOL SODIUM
     Route: 042
  6. EPOPROSTENOL SODIUM [Suspect]
     Active Substance: EPOPROSTENOL SODIUM
     Route: 042
  7. LASIX [Suspect]
     Active Substance: FUROSEMIDE
     Indication: Product used for unknown indication
     Route: 065
  8. ELIQUIS [Suspect]
     Active Substance: APIXABAN
     Indication: Product used for unknown indication
     Route: 065
  9. OPSUMIT [Concomitant]
     Active Substance: MACITENTAN
  10. SILDENAFIL CITRATE [Concomitant]
     Active Substance: SILDENAFIL CITRATE

REACTIONS (11)
  - Weight decreased [Unknown]
  - Anaemia [Unknown]
  - Cat scratch disease [Unknown]
  - Diarrhoea [Not Recovered/Not Resolved]
  - Chromaturia [Unknown]
  - Seasonal allergy [Unknown]
  - Pain [Unknown]
  - Headache [Unknown]
  - Skin laceration [Unknown]
  - Coagulation time prolonged [Unknown]
  - Osteoporosis [Unknown]

NARRATIVE: CASE EVENT DATE: 20230101
